FAERS Safety Report 9742908 (Version 1)
Quarter: 2013Q4

REPORT INFORMATION
  Report Type: Spontaneous
  Country: US (occurrence: US)
  Receive Date: 20131210
  Receipt Date: 20131210
  Transmission Date: 20140711
  Serious: No
  Sender: FDA-Public Use
  Company Number: US-VIIV HEALTHCARE LIMITED-A1046139A

PATIENT
  Age: 35 Year
  Sex: Male

DRUGS (2)
  1. TIVICAY [Suspect]
     Indication: HIV INFECTION
     Dosage: 50MG PER DAY
     Dates: start: 20131002, end: 20131012
  2. EFAVIRENZ [Concomitant]

REACTIONS (1)
  - Insomnia [Not Recovered/Not Resolved]
